FAERS Safety Report 8852984 (Version 1)
Quarter: 2012Q4

REPORT INFORMATION
  Report Type: 
  Country: US (occurrence: US)
  Receive Date: 20121022
  Receipt Date: 20121022
  Transmission Date: 20130627
  Serious: Yes (Other)
  Sender: FDA-Public Use
  Company Number: CHPA2012US021377

PATIENT
  Age: 70 Year
  Sex: Female

DRUGS (2)
  1. EXCEDRIN EXTRA STRENGTH [Suspect]
     Indication: EAR PAIN
     Dosage: 1 to 2 DF, PRN
     Route: 048
     Dates: start: 1992, end: 20121006
  2. EXCEDRIN EXTRA STRENGTH [Suspect]
     Indication: HEADACHE
     Dosage: 2 DF, ONCE/SINGLE
     Route: 048
     Dates: start: 2002, end: 2002

REACTIONS (2)
  - Hearing impaired [Recovered/Resolved]
  - Ear pain [Recovered/Resolved]
